FAERS Safety Report 8587139-4 (Version None)
Quarter: 2012Q3

REPORT INFORMATION
  Report Type: 
  Country: None (occurrence: None)
  Receive Date: 20120810
  Receipt Date: 20120804
  Transmission Date: 20120928
  Serious: Yes (Other)
  Sender: FDA-Public Use
  Company Number: US-VERTEX PHARMACEUTICALS INC.-AE-2012-011543

PATIENT
  Sex: Male
  Weight: 118.04 kg

DRUGS (7)
  1. CETIRIZINE [Concomitant]
     Indication: HYPERSENSITIVITY
  2. INCIVEK [Suspect]
     Indication: HEPATITIS C
     Route: 048
     Dates: start: 20120517
  3. DAYPRO [Concomitant]
     Indication: PAIN
  4. RIBAVIRIN [Concomitant]
     Indication: HEPATITIS C
     Route: 048
     Dates: start: 20120517
  5. CYMBALTA [Concomitant]
     Indication: DEPRESSION
  6. CELEBRAX [Concomitant]
     Indication: PAIN
  7. PEGASYS [Concomitant]
     Indication: HEPATITIS C
     Route: 058
     Dates: start: 20120517

REACTIONS (3)
  - SUICIDAL IDEATION [None]
  - VISUAL IMPAIRMENT [None]
  - NIGHTMARE [None]
